FAERS Safety Report 7650394-9 (Version None)
Quarter: 2011Q3

REPORT INFORMATION
  Report Type: 
  Country: None (occurrence: None)
  Receive Date: 20110721
  Receipt Date: 20110217
  Transmission Date: 20111222
  Serious: Yes (Hospitalization)
  Sender: FDA-Public Use
  Company Number: DSU-2011-01249

PATIENT
  Age: 72 Year
  Sex: Male
  Weight: 83.9154 kg

DRUGS (10)
  1. LIPITOR [Concomitant]
  2. METOPROLOL SUCCINATE [Concomitant]
  3. AVAPRO (IRBESARTAN) (IRBESARTAN) [Concomitant]
  4. PRILOSEC (OMEPRAZOLE) (OMEPRAZOLE) [Concomitant]
  5. DILTIAZEM [Concomitant]
  6. SYNTHROID (LEVOTHYROXINE SODIUM) (LEVOTHYROXINE SODIUM) [Concomitant]
  7. WELCHOL [Suspect]
     Indication: HYPERLIPIDAEMIA
     Dosage: 3750 MG (1875 MG,BID),PER ORAL
     Route: 048
  8. ACTOS (PIOGLITAZONE) (PIOGLITAZONE) [Concomitant]
  9. ZOCOR [Concomitant]
  10. TRICOR [Concomitant]

REACTIONS (3)
  - OSTEOPOROSIS [None]
  - IRON DEFICIENCY [None]
  - MYOCARDIAL INFARCTION [None]
